FAERS Safety Report 24645400 (Version 5)
Quarter: 2025Q1

REPORT INFORMATION
  Report Type: Spontaneous
  Country: FR (occurrence: FR)
  Receive Date: 20241121
  Receipt Date: 20250313
  Transmission Date: 20250409
  Serious: Yes (Other)
  Sender: SANDOZ
  Company Number: FR-AFSSAPS-AN2024001460

PATIENT
  Age: 57 Year
  Sex: Female
  Weight: 67 kg

DRUGS (23)
  1. APREPITANT [Suspect]
     Active Substance: APREPITANT
     Indication: Vomiting
     Dosage: DOSE DESCRIPTION : 160 MG, QOW (160 MILLIGRAM, Q2WEEKS) DAILY DOSE : 11.36 MILLIGRAM REGIMEN DOSE :
     Route: 048
     Dates: start: 20240812
  2. BACTRIM [Suspect]
     Active Substance: SULFAMETHOXAZOLE\TRIMETHOPRIM
     Indication: Infection prophylaxis
     Dosage: DOSE DESCRIPTION : 3 DOSAGE FORM, Q2WEEKS DAILY DOSE : 0.213 DOSAGE FORM REGIMEN DOSE : 3 DOSAGE FOR
     Route: 048
     Dates: start: 20240812
  3. BLEOMYCIN [Suspect]
     Active Substance: BLEOMYCIN SULFATE
     Indication: Hodgkin^s disease
     Route: 042
     Dates: start: 20240812, end: 20240924
  4. BLEOMYCIN SULFATE [Suspect]
     Active Substance: BLEOMYCIN SULFATE
     Indication: Hodgkin^s disease
     Dosage: DOSE DESCRIPTION : 17.1 MILLIGRAM, WHEN DAILY DOSE : 17.1 MILLIGRAM REGIMEN DOSE : 735.3 MILLIGRAM
     Route: 042
     Dates: start: 20240812, end: 20240924
  5. LEUCOVORIN CALCIUM [Suspect]
     Active Substance: LEUCOVORIN CALCIUM
     Indication: Vitamin supplementation
     Route: 048
     Dates: start: 20240812
  6. DACARBAZINE [Suspect]
     Active Substance: DACARBAZINE
     Indication: Hodgkin^s disease
     Dosage: DOSE DESCRIPTION : 650 MILLIGRAM, WHEN DAILY DOSE : 650 MILLIGRAM
     Route: 042
     Dates: start: 20240812
  7. DOXORUBICIN HYDROCHLORIDE [Suspect]
     Active Substance: DOXORUBICIN HYDROCHLORIDE
     Indication: Hodgkin^s disease
     Dosage: DOSE DESCRIPTION : 43 MILLIGRAM, QD DAILY DOSE : 43 MILLIGRAM
     Route: 042
     Dates: start: 20240812
  8. VINBLASTINE SULFATE [Suspect]
     Active Substance: VINBLASTINE SULFATE
     Indication: Hodgkin^s disease
     Dosage: DOSE DESCRIPTION : 10.4 MILLIGRAM, QD DAILY DOSE : 10.4 MILLIGRAM
     Route: 042
     Dates: start: 20240812
  9. LANSOPRAZOLE [Suspect]
     Active Substance: LANSOPRAZOLE
     Indication: Prophylaxis against gastrointestinal ulcer
     Dosage: DOSE DESCRIPTION : 15 MILLIGRAM, QD DAILY DOSE : 15 MILLIGRAM REGIMEN DOSE : 540 MILLIGRAM
     Route: 048
     Dates: start: 20240909, end: 20241015
  10. LEUCOVORIN CALCIUM [Suspect]
     Active Substance: LEUCOVORIN CALCIUM
     Indication: Vitamin supplementation
     Dosage: DOSE DESCRIPTION : 2 DF, QW (2 DOSAGE FORM, WEEKLY) DAILY DOSE : 0.286 DOSAGE FORM REGIMEN DOSE : 2
     Route: 048
     Dates: start: 20240812
  11. POLYETHYLENE GLYCOL 3350\POTASSIUM CHLORIDE\SODIUM BICARBONATE\SODIUM [Suspect]
     Active Substance: POLYETHYLENE GLYCOL 3350\POTASSIUM CHLORIDE\SODIUM BICARBONATE\SODIUM CHLORIDE
     Indication: Pain
     Route: 048
  12. METOCLOPRAMIDE [Suspect]
     Active Substance: METOCLOPRAMIDE
     Indication: Nausea
     Route: 048
     Dates: start: 20240812
  13. METOCLOPRAMIDE HYDROCHLORIDE [Suspect]
     Active Substance: METOCLOPRAMIDE HYDROCHLORIDE
     Indication: Vomiting
     Dosage: DOSE DESCRIPTION : 10 MILLIGRAM, QD DAILY DOSE : 10 MILLIGRAM
     Route: 048
  14. MORPHINE SULFATE [Suspect]
     Active Substance: MORPHINE SULFATE
     Indication: Vomiting
     Dosage: 20 MILLIGRAM, QD
     Route: 048
     Dates: start: 20240923
  15. MORPHINE SULFATE [Suspect]
     Active Substance: MORPHINE SULFATE
     Route: 048
     Dates: start: 20240923
  16. POLYETHYLENE GLYCOLS [Suspect]
     Active Substance: POLYETHYLENE GLYCOLS
     Indication: Constipation
     Route: 048
     Dates: start: 20240812
  17. METHYLPREDNISOLONE [Suspect]
     Active Substance: METHYLPREDNISOLONE
     Indication: Hodgkin^s disease
     Dosage: DOSE DESCRIPTION : 20 MILLIGRAM, QD DAILY DOSE : 20 MILLIGRAM
     Route: 042
     Dates: start: 20240812
  18. MORPHINE SULFATE [Suspect]
     Active Substance: MORPHINE SULFATE
     Indication: Pain
     Dosage: DOSE DESCRIPTION : 20 MILLIGRAM, QD DAILY DOSE : 20 MILLIGRAM
     Route: 048
     Dates: start: 20240923
  19. MORPHINE SULFATE [Suspect]
     Active Substance: MORPHINE SULFATE
     Route: 048
     Dates: start: 20240923
  20. ACETAMINOPHEN [Suspect]
     Active Substance: ACETAMINOPHEN
     Indication: Pain
     Dosage: DOSE DESCRIPTION : 1 GRAM, QD DAILY DOSE : 1 GRAM
     Route: 048
  21. VALACYCLOVIR HYDROCHLORIDE [Suspect]
     Active Substance: VALACYCLOVIR HYDROCHLORIDE
     Indication: Infection prophylaxis
     Dosage: DOSE DESCRIPTION : 1 GRAM, QD DAILY DOSE : 1 GRAM
     Route: 048
     Dates: start: 20240812
  22. VINBLASTINE SULFATE [Suspect]
     Active Substance: VINBLASTINE SULFATE
     Indication: Hodgkin^s disease
     Route: 042
     Dates: start: 20240812
  23. ONDANSETRON [Suspect]
     Active Substance: ONDANSETRON
     Indication: Vomiting
     Dosage: DOSE DESCRIPTION : 6 DF, QOW (6 DOSAGE FORM, Q2WEEKS) ORODISPERSIBLE TABLET DAILY DOSE : 0.426 DOSAG
     Route: 048
     Dates: start: 20240812

REACTIONS (1)
  - Neuropathy peripheral [Recovering/Resolving]

NARRATIVE: CASE EVENT DATE: 20240101
